FAERS Safety Report 8458900-1 (Version None)
Quarter: 2012Q2

REPORT INFORMATION
  Report Type: 
  Country: None (occurrence: None)
  Receive Date: 20120622
  Receipt Date: 20120613
  Transmission Date: 20120825
  Serious: Yes (Hospitalization)
  Sender: FDA-Public Use
  Company Number: US-BAYER-2012-019959

PATIENT
  Age: 23 Year
  Sex: Female
  Weight: 56.689 kg

DRUGS (5)
  1. YAZ [Suspect]
     Indication: ACNE
     Dosage: UNK
     Dates: end: 20090101
  2. DROSPIRENONE AND ETHINYL ESTRADIOL [Suspect]
     Indication: CONTRACEPTION
     Dosage: UNK
     Dates: start: 20081207, end: 20090301
  3. CLARAVIS [Concomitant]
     Dosage: 40 MG, BID
  4. YAZ [Suspect]
     Indication: CONTRACEPTION
     Dosage: UNK
     Dates: start: 20081024, end: 20081201
  5. DROSPIRENONE AND ETHINYL ESTRADIOL [Suspect]
     Indication: ACNE

REACTIONS (5)
  - CHOLECYSTECTOMY [None]
  - INJURY [None]
  - PAIN [None]
  - PANCREATITIS [None]
  - CHOLECYSTITIS CHRONIC [None]
